FAERS Safety Report 4485280-9 (Version None)
Quarter: 2004Q4

REPORT INFORMATION
  Report Type: 
  Country: None (occurrence: None)
  Receive Date: 20041022
  Receipt Date: 20041022
  Transmission Date: 20050328
  Serious: Yes (Death, Other)
  Sender: FDA-Public Use
  Company Number: None

PATIENT
  Age: 23 Year
  Sex: Male
  Weight: 90.7194 kg

DRUGS (2)
  1. ACCUTANE [Suspect]
     Indication: ACNE
     Dosage: 40 MG BID ORAL
     Route: 048
     Dates: start: 20041001, end: 20041020
  2. ACCUTANE [Suspect]
     Indication: FACE OEDEMA
     Dosage: 40 MG BID ORAL
     Route: 048
     Dates: start: 20041001, end: 20041020

REACTIONS (1)
  - COMPLETED SUICIDE [None]
